FAERS Safety Report 5737378-2 (Version None)
Quarter: 2008Q2

REPORT INFORMATION
  Report Type: 
  Country: None (occurrence: None)
  Receive Date: 20080514
  Receipt Date: 20080206
  Transmission Date: 20081010
  Serious: No
  Sender: FDA-Public Use
  Company Number: US-BRISTOL-MYERS SQUIBB COMPANY-14042691

PATIENT
  Age: 65 Year
  Sex: Female

DRUGS (19)
  1. IXEMPRA KIT [Suspect]
     Indication: BREAST CANCER METASTATIC
     Route: 042
     Dates: start: 20080107
  2. GLUCOPHAGE [Suspect]
  3. COUMADIN [Suspect]
  4. FENTANYL TRANSDERMAL SYSTEM [Suspect]
  5. XANAX [Suspect]
  6. BUMEX [Suspect]
  7. POTASSIUM CHLORIDE [Suspect]
     Dosage: 1 DOSAGE FORM=XR 10 MEQ W
  8. LEVAQUIN [Suspect]
  9. AMBIEN [Suspect]
  10. VICODIN [Suspect]
  11. ASPIRIN [Suspect]
  12. CALTRATE + D [Suspect]
  13. PROTONIX [Suspect]
  14. COMPAZINE [Suspect]
  15. MYLANTA [Suspect]
     Dosage: 4 DOSAGE FORM  = 4TSP 2-3XDAY OR PRN.
  16. METAMUCIL [Suspect]
     Dosage: 2 DOSAGE FORM = 2 TSP.
  17. NEURONTIN [Suspect]
  18. NEUPOGEN [Suspect]
     Indication: PROPHYLAXIS
  19. ARANESP [Suspect]
     Indication: PROPHYLAXIS

REACTIONS (1)
  - RASH [None]
